FAERS Safety Report 20162387 (Version 1)
Quarter: 2021Q4

REPORT INFORMATION
  Report Type: Other
  Country: CA (occurrence: CA)
  Receive Date: 20211208
  Receipt Date: 20211208
  Transmission Date: 20220304
  Serious: Yes (Hospitalization)
  Sender: FDA-Public Use
  Company Number: CA-MAYNE PHARMA-2021MYN000666

PATIENT

DRUGS (15)
  1. ERYTHROMYCIN [Suspect]
     Active Substance: ERYTHROMYCIN
     Indication: Product used for unknown indication
  2. MEPOLIZUMAB [Suspect]
     Active Substance: MEPOLIZUMAB
     Indication: Asthma
     Dosage: 100 MG
     Route: 058
  3. PENICILLIN V POTASSIUM [Suspect]
     Active Substance: PENICILLIN V POTASSIUM
     Indication: Product used for unknown indication
  4. BUDESONIDE [Concomitant]
     Active Substance: BUDESONIDE
     Indication: Product used for unknown indication
  5. FORMOTEROL FUMARATE [Concomitant]
     Active Substance: FORMOTEROL FUMARATE
     Indication: Product used for unknown indication
  6. CALCIUM [Concomitant]
     Active Substance: CALCIUM
     Indication: Product used for unknown indication
  7. CELEBREX [Concomitant]
     Active Substance: CELECOXIB
     Indication: Product used for unknown indication
  8. GABAPENTIN [Concomitant]
     Active Substance: GABAPENTIN
     Indication: Product used for unknown indication
  9. PANTOPRAZOLE SODIUM ANHYDROUS [Concomitant]
     Active Substance: PANTOPRAZOLE SODIUM ANHYDROUS
     Indication: Product used for unknown indication
  10. PREDNISONE [Concomitant]
     Active Substance: PREDNISONE
     Indication: Product used for unknown indication
  11. ROSUVASTATIN CALCIUM [Concomitant]
     Active Substance: ROSUVASTATIN CALCIUM
     Indication: Product used for unknown indication
  12. SINGULAIR [Concomitant]
     Active Substance: MONTELUKAST SODIUM
     Indication: Product used for unknown indication
  13. SYNTHROID [Concomitant]
     Active Substance: LEVOTHYROXINE SODIUM
     Indication: Product used for unknown indication
  14. DULOXETINE HYDROCHLORIDE [Concomitant]
     Active Substance: DULOXETINE HYDROCHLORIDE
     Indication: Product used for unknown indication
  15. VENTOLIN [Concomitant]
     Active Substance: ALBUTEROL SULFATE
     Indication: Product used for unknown indication

REACTIONS (5)
  - Arthralgia [Not Recovered/Not Resolved]
  - Asthenia [Not Recovered/Not Resolved]
  - Back pain [Not Recovered/Not Resolved]
  - Staphylococcal infection [Not Recovered/Not Resolved]
  - Drug hypersensitivity [Not Recovered/Not Resolved]
